FAERS Safety Report 9955710 (Version 1)
Quarter: 2014Q1

REPORT INFORMATION
  Report Type: Report from Study
  Country: US (occurrence: US)
  Receive Date: 20140304
  Receipt Date: 20140304
  Transmission Date: 20141002
  Serious: No
  Sender: FDA-Public Use
  Company Number: US-ABBVIE-13P-163-1087035-00

PATIENT
  Age: 55 Year
  Sex: Female
  Weight: 64.01 kg

DRUGS (15)
  1. HUMIRA [Suspect]
     Indication: CROHN^S DISEASE
     Dates: start: 201209, end: 201305
  2. HUMIRA [Suspect]
     Dates: start: 201305
  3. TIKOSYN [Concomitant]
     Indication: ARRHYTHMIA
  4. LISINOPRIL [Concomitant]
     Indication: HYPERTENSION
  5. SPIRONOLACTONE [Concomitant]
     Indication: CARDIOMYOPATHY
  6. CARVEDIL D [Concomitant]
     Indication: CARDIOMYOPATHY
  7. AZATHIOPRINE [Concomitant]
     Indication: CROHN^S DISEASE
  8. CLONAZEPAM [Concomitant]
     Indication: SLEEP DISORDER
  9. GABAPENTIN [Concomitant]
     Indication: NEUROPATHY PERIPHERAL
  10. ZOLOFT [Concomitant]
     Indication: DEPRESSION
  11. CHOLESTYRAMINE [Concomitant]
     Indication: CROHN^S DISEASE
  12. MAGNESIUM [Concomitant]
     Indication: MINERAL SUPPLEMENTATION
  13. VITAMIN B12 [Concomitant]
     Indication: VITAMIN SUPPLEMENTATION
  14. CALCIUM [Concomitant]
     Indication: MINERAL SUPPLEMENTATION
  15. MVI [Concomitant]
     Indication: VITAMIN SUPPLEMENTATION

REACTIONS (3)
  - Weight decreased [Not Recovered/Not Resolved]
  - Drug ineffective [Not Recovered/Not Resolved]
  - Proctalgia [Not Recovered/Not Resolved]
